FAERS Safety Report 7444767-7 (Version None)
Quarter: 2011Q2

REPORT INFORMATION
  Report Type: 
  Country: None (occurrence: None)
  Receive Date: 20110429
  Receipt Date: 20110418
  Transmission Date: 20111010
  Serious: Yes (Other)
  Sender: FDA-Public Use
  Company Number: US-ASTRAZENECA-2007UW04358

PATIENT
  Age: 60 Year
  Sex: Female
  Weight: 97.5 kg

DRUGS (2)
  1. ZOLOFT [Concomitant]
     Dates: start: 20060101
  2. SEROQUEL [Suspect]
     Indication: SLEEP DISORDER
     Route: 048
     Dates: start: 20030601, end: 20060401

REACTIONS (2)
  - TYPE 2 DIABETES MELLITUS [None]
  - JOINT INJURY [None]
